FAERS Safety Report 16960822 (Version 1)
Quarter: 2019Q4

REPORT INFORMATION
  Report Type: Spontaneous
  Country: CA (occurrence: CA)
  Receive Date: 20191025
  Receipt Date: 20191025
  Transmission Date: 20200122
  Serious: Yes (Other)
  Sender: FDA-Public Use
  Company Number: CA-TEVA-2019-CA-1126264

PATIENT
  Age: 36 Year
  Sex: Female
  Weight: 41 kg

DRUGS (7)
  1. PROPOFOL. [Suspect]
     Active Substance: PROPOFOL
     Indication: MAINTENANCE OF ANAESTHESIA
     Route: 065
  2. SUFENTANIL CITRATE SANDOZ [Concomitant]
     Active Substance: SUFENTANIL CITRATE
  3. SODIUM CHLORIDE INJECTION 0.9% [Suspect]
     Active Substance: SODIUM CHLORIDE
     Indication: DRUG THERAPY
  4. ACETAMINOPHEN. [Concomitant]
     Active Substance: ACETAMINOPHEN
  5. SODIUM CHLORIDE INJECTION 0.9% [Suspect]
     Active Substance: SODIUM CHLORIDE
     Indication: FLUID REPLACEMENT
     Route: 042
  6. IBUPROFEN. [Concomitant]
     Active Substance: IBUPROFEN
  7. SODIUM CHLORIDE INJECTION 0.9% [Suspect]
     Active Substance: SODIUM CHLORIDE
     Indication: HYSTEROSCOPY
     Route: 015

REACTIONS (5)
  - Acidosis hyperchloraemic [Unknown]
  - Haemodilution [Unknown]
  - Metabolic disorder [Unknown]
  - Hypokalaemia [Unknown]
  - Arrhythmia [Unknown]
